FAERS Safety Report 4792362-0 (Version None)
Quarter: 2005Q4

REPORT INFORMATION
  Report Type: 
  Country: None (occurrence: None)
  Receive Date: 20051010
  Receipt Date: 20050928
  Transmission Date: 20060501
  Serious: Yes (Hospitalization)
  Sender: FDA-Public Use
  Company Number: US-BOEHRINGER INGELHEIM PHARMACEUTICALS, INC.-2005-BP-17206BP

PATIENT
  Sex: Male

DRUGS (9)
  1. MIRAPEX [Suspect]
     Indication: RESTLESS LEGS SYNDROME
     Route: 048
     Dates: start: 19960101, end: 20050816
  2. INSULIN [Concomitant]
     Indication: DIABETES MELLITUS
  3. LASIX [Concomitant]
  4. VAROXOLYN [Concomitant]
  5. MICARDIS [Concomitant]
  6. HYDROCODONE [Concomitant]
     Indication: GOUT
  7. MECLIZINE [Concomitant]
  8. KLOR-CON [Concomitant]
  9. VERAPAMIL [Concomitant]

REACTIONS (8)
  - ABASIA [None]
  - CHEST PAIN [None]
  - DEPRESSION [None]
  - DRUG PRESCRIBING ERROR [None]
  - DYSKINESIA [None]
  - GOUT [None]
  - OVERDOSE [None]
  - RESTLESS LEGS SYNDROME [None]
